FAERS Safety Report 12437910 (Version 1)
Quarter: 2016Q2

REPORT INFORMATION
  Report Type: Spontaneous
  Country: US (occurrence: US)
  Receive Date: 20160606
  Receipt Date: 20160606
  Transmission Date: 20160815
  Serious: No
  Sender: FDA-Public Use
  Company Number: US-BAYER-2016-103423

PATIENT
  Age: 5 Year
  Sex: Female
  Weight: 24.36 kg

DRUGS (1)
  1. CLARITIN REDITABS [Suspect]
     Active Substance: LORATADINE

REACTIONS (4)
  - Drug administered to patient of inappropriate age [None]
  - Extra dose administered [None]
  - Extra dose administered [None]
  - Drug prescribing error [None]

NARRATIVE: CASE EVENT DATE: 20160525
